FAERS Safety Report 21197064 (Version 3)
Quarter: 2022Q3

REPORT INFORMATION
  Report Type: Report from Study
  Country: US (occurrence: US)
  Receive Date: 20220810
  Receipt Date: 20220812
  Transmission Date: 20221027
  Serious: Yes (Other)
  Sender: FDA-Public Use
  Company Number: US-NOVARTISPH-NVSC2022US180719

PATIENT
  Sex: Female

DRUGS (1)
  1. ENTRESTO [Suspect]
     Active Substance: SACUBITRIL\VALSARTAN
     Indication: Cardiac failure
     Dosage: 1 DOSAGE FORM, BID, (24/26 MG)
     Route: 048

REACTIONS (5)
  - Spinal compression fracture [Unknown]
  - Malaise [Unknown]
  - Respiratory syncytial virus infection [Unknown]
  - Hypoacusis [Unknown]
  - Fall [Unknown]
